FAERS Safety Report 21630669 (Version 2)
Quarter: 2022Q4

REPORT INFORMATION
  Report Type: Spontaneous
  Country: NL (occurrence: NL)
  Receive Date: 20221123
  Receipt Date: 20221206
  Transmission Date: 20230113
  Serious: Yes (Other)
  Sender: FDA-Public Use
  Company Number: NL-AMGEN-NLDSP2022200101

PATIENT

DRUGS (5)
  1. ADALIMUMAB [Suspect]
     Active Substance: ADALIMUMAB
     Indication: Crohn^s disease
     Dosage: 40 MILLIGRAM
     Route: 065
  2. THIOGUANINE ANHYDROUS [Concomitant]
     Active Substance: THIOGUANINE ANHYDROUS
  3. BUDESONIDE [Concomitant]
     Active Substance: BUDESONIDE
  4. PREDNISONE [Concomitant]
     Active Substance: PREDNISONE
  5. USTEKINUMAB [Concomitant]
     Active Substance: USTEKINUMAB

REACTIONS (4)
  - Crohn^s disease [Unknown]
  - Gastrointestinal disorder [Unknown]
  - Adverse event [Unknown]
  - Infection [Unknown]
